FAERS Safety Report 21156275 (Version 1)
Quarter: 2022Q3

REPORT INFORMATION
  Report Type: Spontaneous
  Country: SA (occurrence: SA)
  Receive Date: 20220801
  Receipt Date: 20220801
  Transmission Date: 20221027
  Serious: Yes (Hospitalization, Other)
  Sender: FDA-Public Use
  Company Number: SA-GILEAD-2022-0591128

PATIENT
  Age: 80 Year
  Sex: Female

DRUGS (8)
  1. VEKLURY [Suspect]
     Active Substance: REMDESIVIR
     Indication: COVID-19
     Dosage: 5 DAYS
     Route: 065
  2. OXYGEN [Concomitant]
     Active Substance: OXYGEN
     Dosage: HIGH FLOW (NON-INVASIVE VENTILATION); HIGH FRACTION OF INSPIRATED OXYGEN
     Route: 045
  3. FUROSEMIDE [Concomitant]
     Active Substance: FUROSEMIDE
  4. AZITHROMYCIN [Concomitant]
     Active Substance: AZITHROMYCIN
  5. MEROPENEM [Concomitant]
     Active Substance: MEROPENEM
  6. DEXAMETHASONE [Concomitant]
     Active Substance: DEXAMETHASONE
  7. TOCILIZUMAB [Concomitant]
     Active Substance: TOCILIZUMAB
  8. HEPARIN [Concomitant]
     Active Substance: HEPARIN SODIUM

REACTIONS (1)
  - Electrocardiogram QT prolonged [Recovered/Resolved]
